FAERS Safety Report 7289296-9 (Version None)
Quarter: 2011Q1

REPORT INFORMATION
  Report Type: 
  Country: None (occurrence: None)
  Receive Date: 20110211
  Receipt Date: 20110131
  Transmission Date: 20110831
  Serious: Yes (Hospitalization, Other)
  Sender: FDA-Public Use
  Company Number: AT-ELI_LILLY_AND_COMPANY-AT201102000085

PATIENT
  Age: 51 Year
  Sex: Female

DRUGS (15)
  1. SEROQUEL [Concomitant]
     Dosage: 200 MG, UNK
     Dates: start: 20100901, end: 20101221
  2. SEROQUEL [Concomitant]
     Dosage: 250 MG, UNK
     Dates: start: 20101222
  3. CYMBALTA [Suspect]
     Dosage: 30 MG, DAILY (1/D)
     Dates: start: 20110107, end: 20110108
  4. FLUCTINE [Suspect]
     Dosage: 40 MG, DAILY (1/D)
     Dates: start: 20100501, end: 20101212
  5. PANTOLOC [Concomitant]
     Dosage: 40 MG, UNK
     Dates: start: 20101210
  6. CYMBALTA [Suspect]
     Dosage: 90 MG, DAILY (1/D)
     Dates: start: 20101220, end: 20110105
  7. FLUCTINE [Suspect]
     Dosage: 10 MG, DAILY (1/D)
     Dates: start: 20101216, end: 20101218
  8. TRITTICO [Concomitant]
     Dosage: 100 MG, UNK
     Dates: start: 20101206, end: 20101212
  9. TRITTICO [Concomitant]
     Dosage: 150 MG, UNK
     Dates: start: 20101213
  10. CYMBALTA [Suspect]
     Dosage: 60 MG, UNK
     Dates: start: 20110106, end: 20110106
  11. EFFECTIN [Concomitant]
     Dosage: 150 MG, UNK
     Dates: start: 20101021, end: 20101208
  12. PANTOLOC [Concomitant]
     Dosage: 20 MG, UNK
     Dates: start: 20100901, end: 20101209
  13. EFFECTIN [Concomitant]
     Dosage: 300 MG, UNK
     Dates: start: 20100401, end: 20101001
  14. FLUCTINE [Suspect]
     Dosage: 20 MG, DAILY (1/D)
     Dates: start: 20101213, end: 20101215
  15. CYMBALTA [Suspect]
     Dosage: 60 MG, DAILY (1/D)
     Dates: start: 20101208, end: 20101219

REACTIONS (4)
  - DIARRHOEA [None]
  - MALAISE [None]
  - HOSPITALISATION [None]
  - ABDOMINAL DISTENSION [None]
